FAERS Safety Report 14693187 (Version 2)
Quarter: 2018Q3

REPORT INFORMATION
  Report Type: Spontaneous
  Country: AR (occurrence: AR)
  Receive Date: 20180329
  Receipt Date: 20180705
  Transmission Date: 20181010
  Serious: Yes (Other)
  Sender: FDA-Public Use
  Company Number: AR-BAYER-2018-056265

PATIENT
  Age: 33 Year
  Sex: Male

DRUGS (1)
  1. BETAFERON [Suspect]
     Active Substance: INTERFERON BETA-1B
     Indication: MULTIPLE SCLEROSIS
     Dosage: UNK
     Dates: start: 2008, end: 2012

REACTIONS (6)
  - Visual acuity reduced [Unknown]
  - Pain in extremity [Unknown]
  - Optic neuritis [Unknown]
  - Eye pain [Unknown]
  - Multiple sclerosis [Unknown]
  - Pain [Unknown]
